FAERS Safety Report 24248632 (Version 1)
Quarter: 2024Q3

REPORT INFORMATION
  Report Type: Spontaneous
  Country: FR (occurrence: FR)
  Receive Date: 20240826
  Receipt Date: 20240826
  Transmission Date: 20241017
  Serious: Yes (Other)
  Sender: MYLAN
  Company Number: None

PATIENT
  Age: 31 Year
  Sex: Female

DRUGS (57)
  1. GABAPENTIN [Suspect]
     Active Substance: GABAPENTIN
     Indication: Neuralgia
     Dosage: 300 MILLIGRAM, QD
     Route: 048
     Dates: start: 20240213, end: 20240216
  2. GABAPENTIN [Suspect]
     Active Substance: GABAPENTIN
     Dosage: 600 MILLIGRAM, QD
     Route: 048
     Dates: start: 20240216, end: 20240221
  3. GABAPENTIN [Suspect]
     Active Substance: GABAPENTIN
     Dosage: 900 MILLIGRAM, QD
     Route: 048
     Dates: start: 20240221, end: 20240301
  4. GABAPENTIN [Suspect]
     Active Substance: GABAPENTIN
     Dosage: 1200 MILLIGRAM, QD
     Route: 048
     Dates: start: 20240301, end: 20240405
  5. GABAPENTIN [Suspect]
     Active Substance: GABAPENTIN
     Dosage: 1500 MILLIGRAM, QD
     Route: 048
     Dates: start: 20240405, end: 20240425
  6. GABAPENTIN [Suspect]
     Active Substance: GABAPENTIN
     Dosage: 1800 MILLIGRAM, QD
     Route: 048
     Dates: start: 20240425, end: 20240619
  7. GABAPENTIN [Suspect]
     Active Substance: GABAPENTIN
     Dosage: 2400 MILLIGRAM, QD
     Route: 048
     Dates: start: 20240619
  8. CLOZAPINE [Suspect]
     Active Substance: CLOZAPINE
     Indication: Schizophrenia
     Dosage: 50 MILLIGRAM, QD
     Route: 048
     Dates: start: 20240104, end: 20240108
  9. CLOZAPINE [Suspect]
     Active Substance: CLOZAPINE
     Dosage: 100 MILLIGRAM, QD
     Route: 048
     Dates: start: 20240108, end: 20240112
  10. CLOZAPINE [Suspect]
     Active Substance: CLOZAPINE
     Dosage: 150 MILLIGRAM, QD
     Route: 048
     Dates: start: 20240112, end: 20240119
  11. CLOZAPINE [Suspect]
     Active Substance: CLOZAPINE
     Dosage: 200 MILLIGRAM, QD
     Route: 048
     Dates: start: 20240119, end: 20240426
  12. CLOZAPINE [Suspect]
     Active Substance: CLOZAPINE
     Dosage: 400 MILLIGRAM, QD
     Route: 048
     Dates: start: 20240514
  13. DUPHALAC [Suspect]
     Active Substance: LACTULOSE
     Indication: Constipation
     Dosage: 3 DOSAGE FORM, QD (3 SACHETS/DAY)
     Route: 048
     Dates: start: 20240322, end: 20240401
  14. DUPHALAC [Suspect]
     Active Substance: LACTULOSE
     Dosage: 1 DOSAGE FORM, PRN (1 SACHET IF NECESSARY)
     Route: 048
     Dates: start: 20240404, end: 20240405
  15. DUPHALAC [Suspect]
     Active Substance: LACTULOSE
     Dosage: 3 DOSAGE FORM, QD (3 SACHETS/DAY)
     Route: 048
     Dates: start: 20240405, end: 20240604
  16. DUPHALAC [Suspect]
     Active Substance: LACTULOSE
     Dosage: 2 DOSAGE FORM, QD (2 SACHETS/DAY)
     Route: 048
     Dates: start: 20240627
  17. NALOXEGOL OXALATE [Suspect]
     Active Substance: NALOXEGOL OXALATE
     Indication: Constipation
     Dosage: 12.5 MILLIGRAM, QD
     Route: 048
     Dates: start: 20240405, end: 20240605
  18. NALOXEGOL OXALATE [Suspect]
     Active Substance: NALOXEGOL OXALATE
     Dosage: 25 MILLIGRAM, QD
     Route: 048
     Dates: start: 20240605, end: 20240614
  19. NALOXEGOL OXALATE [Suspect]
     Active Substance: NALOXEGOL OXALATE
     Dosage: 25 MILLIGRAM, QD
     Route: 048
     Dates: start: 20240705, end: 20240718
  20. SKENAN [Suspect]
     Active Substance: MORPHINE SULFATE
     Indication: Pain
     Dosage: 40 MILLIGRAM, QD
     Route: 048
     Dates: start: 20240514, end: 20240524
  21. SKENAN [Suspect]
     Active Substance: MORPHINE SULFATE
     Dosage: 20 MILLIGRAM, QD
     Route: 048
     Dates: start: 20240524, end: 20240610
  22. SKENAN [Suspect]
     Active Substance: MORPHINE SULFATE
     Dosage: 15 MILLIGRAM, QD
     Route: 048
     Dates: start: 20240610, end: 20240610
  23. SKENAN [Suspect]
     Active Substance: MORPHINE SULFATE
     Dosage: 10 MILLIGRAM, QD
     Route: 048
     Dates: start: 20240610, end: 20240613
  24. MOVICOL [Suspect]
     Active Substance: POLYETHYLENE GLYCOL 3350\POTASSIUM CHLORIDE\SODIUM BICARBONATE\SODIUM CHLORIDE
     Indication: Constipation
     Dosage: 1 DOSAGE FORM, QD (1 SACHETS/DAY)
     Route: 048
     Dates: start: 20240115, end: 20240119
  25. MOVICOL [Suspect]
     Active Substance: POLYETHYLENE GLYCOL 3350\POTASSIUM CHLORIDE\SODIUM BICARBONATE\SODIUM CHLORIDE
     Dosage: 2 DOSAGE FORM, QD (2 SACHETS/DAY)
     Route: 048
     Dates: start: 20240119, end: 20240122
  26. MOVICOL [Suspect]
     Active Substance: POLYETHYLENE GLYCOL 3350\POTASSIUM CHLORIDE\SODIUM BICARBONATE\SODIUM CHLORIDE
     Dosage: 2 DOSAGE FORM, QD (2 SACHETS/DAY)
     Route: 048
     Dates: start: 20240130, end: 20240226
  27. MOVICOL [Suspect]
     Active Substance: POLYETHYLENE GLYCOL 3350\POTASSIUM CHLORIDE\SODIUM BICARBONATE\SODIUM CHLORIDE
     Dosage: 2 DOSAGE FORM, QD (2 SACHETS/DAY)
     Route: 048
     Dates: start: 20240604, end: 20240626
  28. MOVICOL [Suspect]
     Active Substance: POLYETHYLENE GLYCOL 3350\POTASSIUM CHLORIDE\SODIUM BICARBONATE\SODIUM CHLORIDE
     Dosage: 4 DOSAGE FORM, QD (4 SACHETS/DAY)
     Route: 048
     Dates: start: 20240626, end: 20240627
  29. CYAMEMAZINE [Suspect]
     Active Substance: CYAMEMAZINE
     Indication: Psychotic disorder
     Dosage: 250 MILLIGRAM, QD
     Route: 048
     Dates: start: 20240104, end: 20240112
  30. CYAMEMAZINE [Suspect]
     Active Substance: CYAMEMAZINE
     Dosage: 50 MILLIGRAM, PRN (IF NECESSARY)
     Route: 048
     Dates: start: 20240112, end: 20240322
  31. CYAMEMAZINE [Suspect]
     Active Substance: CYAMEMAZINE
     Dosage: 30 MILLIGRAM, PRN (IF NECESSARY)
     Route: 048
     Dates: start: 20240322, end: 20240511
  32. CYAMEMAZINE [Suspect]
     Active Substance: CYAMEMAZINE
     Dosage: 200 MILLIGRAM, QD
     Route: 048
     Dates: start: 20240511, end: 20240708
  33. CYAMEMAZINE [Suspect]
     Active Substance: CYAMEMAZINE
     Dosage: 100 MILLIGRAM, QD
     Route: 048
     Dates: start: 20240708, end: 20240711
  34. FLUPENTIXOL [Suspect]
     Active Substance: FLUPENTIXOL
     Indication: Psychotic disorder
     Dosage: 30 MILLIGRAM, QD
     Route: 048
     Dates: start: 20240515, end: 20240529
  35. FLUPENTIXOL [Suspect]
     Active Substance: FLUPENTIXOL
     Dosage: 60 MILLIGRAM, QD
     Route: 048
     Dates: start: 20240529, end: 20240611
  36. FLUPENTIXOL [Suspect]
     Active Substance: FLUPENTIXOL
     Dosage: 80 MILLIGRAM, QD
     Route: 048
     Dates: start: 20240611, end: 20240624
  37. FLUPENTIXOL [Suspect]
     Active Substance: FLUPENTIXOL
     Dosage: 100 MILLIGRAM, QD
     Route: 048
     Dates: start: 20240624, end: 20240704
  38. FLUPENTIXOL [Suspect]
     Active Substance: FLUPENTIXOL
     Dosage: 120 MILLIGRAM, QD
     Route: 048
     Dates: start: 20240704, end: 20240704
  39. FLUPENTIXOL [Suspect]
     Active Substance: FLUPENTIXOL
     Dosage: 100 MILLIGRAM, QD
     Route: 048
     Dates: start: 20240704, end: 20240718
  40. SCOPOLAMINE [Suspect]
     Active Substance: SCOPOLAMINE
     Indication: Salivary hypersecretion
     Dosage: 1 DOSAGE FORM, Q3D (1 PATCH/72H) (1 MG/72 HOURS)
     Route: 062
     Dates: start: 20240629, end: 20240718
  41. IMOVANE [Suspect]
     Active Substance: ZOPICLONE
     Indication: Insomnia
     Dosage: 7.5 MILLIGRAM, QD (1 TAB/DAY)
     Route: 048
     Dates: start: 20240511, end: 20240511
  42. IMOVANE [Suspect]
     Active Substance: ZOPICLONE
     Dosage: 3.75 MILLIGRAM, PRN (1/2 TAB IF NECESSARY)
     Route: 048
     Dates: start: 20240614
  43. LIDOCAINE [Suspect]
     Active Substance: LIDOCAINE
     Indication: Pain
     Dosage: 1 DOSAGE FORM, Q3D (1 DAY IN 3)
     Route: 003
     Dates: start: 20240221, end: 20240514
  44. LIDOCAINE [Suspect]
     Active Substance: LIDOCAINE
     Dosage: 1 DOSAGE FORM, Q3D (1 DAY IN 3)
     Route: 003
     Dates: start: 20240621, end: 20240718
  45. MORPHINE SULFATE [Suspect]
     Active Substance: MORPHINE SULFATE
     Indication: Pain
     Dosage: 5 MILLIGRAM, PRN (IF NECESSARY)
     Route: 048
     Dates: start: 20240112, end: 20240115
  46. MORPHINE SULFATE [Suspect]
     Active Substance: MORPHINE SULFATE
     Dosage: 5 MILLIGRAM, PRN (IF NECESSARY)
     Route: 048
     Dates: start: 20240514
  47. FERROUS SULFATE [Concomitant]
     Active Substance: FERROUS SULFATE
     Indication: Iron deficiency
     Dosage: 80 MILLIGRAM, QD
     Route: 048
     Dates: start: 20240119, end: 20240530
  48. OXYCODONE HYDROCHLORIDE [Concomitant]
     Active Substance: OXYCODONE HYDROCHLORIDE
     Indication: Pain
     Dosage: 5 MILLIGRAM, PRN (IF NECESSARY)
     Route: 048
     Dates: start: 20240115, end: 20240229
  49. OXYCODONE HYDROCHLORIDE [Concomitant]
     Active Substance: OXYCODONE HYDROCHLORIDE
     Dosage: 5 MILLIGRAM, PRN (IF NECESSARY)
     Route: 048
     Dates: start: 20240313, end: 20240514
  50. ACUPAN [Concomitant]
     Active Substance: NEFOPAM HYDROCHLORIDE
     Indication: Pain
     Dosage: 80 MILLIGRAM, QD
     Route: 048
     Dates: start: 20240221, end: 20240311
  51. ACUPAN [Concomitant]
     Active Substance: NEFOPAM HYDROCHLORIDE
     Dosage: 20 MILLIGRAM, PRN (IF NECESSARY)
     Route: 048
     Dates: start: 20240514, end: 20240530
  52. VALIUM [Concomitant]
     Active Substance: DIAZEPAM
     Indication: Product used for unknown indication
     Dosage: 10 MILLIGRAM, PRN (IF NECESSARY)
     Route: 048
     Dates: start: 20240104, end: 20240115
  53. VALIUM [Concomitant]
     Active Substance: DIAZEPAM
     Dosage: 10 MILLIGRAM, QD
     Route: 048
     Dates: start: 20240123, end: 20240412
  54. FOLIC ACID [Concomitant]
     Active Substance: FOLIC ACID
     Indication: Folate deficiency
     Dosage: 5 MILLIGRAM, QD
     Route: 048
     Dates: start: 20240119, end: 20240530
  55. OXYCONTIN [Concomitant]
     Active Substance: OXYCODONE HYDROCHLORIDE
     Indication: Pain
     Dosage: 20 MILLIGRAM, QD
     Route: 048
     Dates: start: 20240123, end: 20240514
  56. ABILIFY [Concomitant]
     Active Substance: ARIPIPRAZOLE
     Indication: Pain
     Dosage: 5 MILLIGRAM, QD
     Route: 048
     Dates: start: 20240119, end: 20240119
  57. ABILIFY [Concomitant]
     Active Substance: ARIPIPRAZOLE
     Indication: Pain
     Dosage: 400 MILLIGRAM, MONTHLY
     Route: 042
     Dates: start: 20240126, end: 20240515

REACTIONS (1)
  - Hyperprolactinaemia [Recovering/Resolving]

NARRATIVE: CASE EVENT DATE: 20240701
